FAERS Safety Report 16592282 (Version 4)
Quarter: 2021Q3

REPORT INFORMATION
  Report Type: Spontaneous
  Country: JP (occurrence: JP)
  Receive Date: 20190718
  Receipt Date: 20210903
  Transmission Date: 20211014
  Serious: Yes (Hospitalization, Disabling)
  Sender: FDA-Public Use
  Company Number: JP-REGENERON PHARMACEUTICALS, INC.-2019-41707

PATIENT

DRUGS (13)
  1. EYLEA [Suspect]
     Active Substance: AFLIBERCEPT
     Indication: NEOVASCULAR AGE-RELATED MACULAR DEGENERATION
     Dosage: ONCE, RIGHT EYE
     Route: 031
     Dates: start: 201504, end: 201504
  2. EYLEA [Suspect]
     Active Substance: AFLIBERCEPT
     Dosage: 2 MG, ONCE, RIGHT EYE
     Route: 031
     Dates: start: 201606, end: 201606
  3. LUCENTIS [Suspect]
     Active Substance: RANIBIZUMAB
     Indication: NEOVASCULAR AGE-RELATED MACULAR DEGENERATION
     Dosage: 0.05 ML, ONCE
     Route: 031
     Dates: start: 20170317
  4. EYLEA [Suspect]
     Active Substance: AFLIBERCEPT
     Dosage: TOTAL 7 TIMES
     Route: 031
     Dates: start: 201708, end: 201808
  5. EYLEA [Suspect]
     Active Substance: AFLIBERCEPT
     Dosage: 2 MG, ONCE, RIGHT EYE
     Route: 031
     Dates: start: 201507, end: 201507
  6. EYLEA [Suspect]
     Active Substance: AFLIBERCEPT
     Dosage: 2 MG, ONCE, RIGHT EYE
     Route: 031
     Dates: start: 201610, end: 201610
  7. EYLEA [Suspect]
     Active Substance: AFLIBERCEPT
     Dosage: ONCE, RIGHT EYE
     Dates: start: 201505, end: 201505
  8. EYLEA [Suspect]
     Active Substance: AFLIBERCEPT
     Dosage: ONCE, RIGHT EYE
     Route: 031
     Dates: start: 201608, end: 201608
  9. EYLEA [Suspect]
     Active Substance: AFLIBERCEPT
     Dosage: 2 MG, ONCE, RIGHT EYE
     Route: 031
     Dates: start: 201701, end: 201701
  10. EYLEA [Suspect]
     Active Substance: AFLIBERCEPT
     Dosage: ONCE, RIGHT EYE
     Dates: start: 201506, end: 201506
  11. EYLEA [Suspect]
     Active Substance: AFLIBERCEPT
     Dosage: 2 MG, ONCE, RIGHT EYE
     Route: 031
     Dates: start: 201607, end: 201607
  12. EYLEA [Suspect]
     Active Substance: AFLIBERCEPT
     Dosage: 2 MG, ONCE, RIGHT EYE
     Route: 031
     Dates: start: 20170501, end: 20170501
  13. EYLEA [Suspect]
     Active Substance: AFLIBERCEPT
     Dosage: 2 MG, ONCE, RIGHT EYE
     Route: 031
     Dates: start: 20170628, end: 20170628

REACTIONS (2)
  - Macular hole [Recovered/Resolved with Sequelae]
  - Visual acuity reduced [Unknown]

NARRATIVE: CASE EVENT DATE: 2017
